FAERS Safety Report 11869500 (Version 1)
Quarter: 2015Q4

REPORT INFORMATION
  Report Type: Spontaneous
  Country: CH (occurrence: CH)
  Receive Date: 20151227
  Receipt Date: 20151227
  Transmission Date: 20160305
  Serious: Yes (Other)
  Sender: FDA-Public Use
  Company Number: CH-ROCHE-1684267

PATIENT
  Age: 34 Year
  Sex: Male
  Weight: 100 kg

DRUGS (7)
  1. SPIRICORT [Concomitant]
     Active Substance: PREDNISOLONE
     Indication: THROMBOTIC THROMBOCYTOPENIC PURPURA
     Dosage: FILMTABLETTEN
     Route: 048
  2. CYMBALTA [Concomitant]
     Active Substance: DULOXETINE HYDROCHLORIDE
     Indication: DEPRESSION
     Dosage: KAPSELN
     Route: 048
  3. VALTREX [Concomitant]
     Active Substance: VALACYCLOVIR HYDROCHLORIDE
     Indication: ANTIVIRAL PROPHYLAXIS
     Dosage: FILMTABLETTEN
     Route: 048
  4. TAVEGYL [Concomitant]
     Active Substance: CLEMASTINE FUMARATE
     Indication: ANAPHYLAXIS PROPHYLAXIS
     Route: 042
     Dates: start: 20150905, end: 20150905
  5. MABTHERA [Suspect]
     Active Substance: RITUXIMAB
     Indication: THROMBOTIC THROMBOCYTOPENIC PURPURA
     Dosage: DURATION OF DRUG ADMINISTRATION: 2 MINUTES 722.6ML/H
     Route: 041
     Dates: start: 20150905, end: 20150905
  6. PANTOZOL (SWITZERLAND) [Concomitant]
     Active Substance: PANTOPRAZOLE SODIUM
     Indication: GASTRITIS PROPHYLAXIS
     Dosage: 20 MG TABLETTEN
     Route: 048
  7. DAFALGAN [Concomitant]
     Active Substance: ACETAMINOPHEN
     Indication: PAIN PROPHYLAXIS
     Route: 048
     Dates: start: 20150905, end: 20150905

REACTIONS (10)
  - Nausea [Recovered/Resolved]
  - Troponin T increased [Recovering/Resolving]
  - Erythema [Recovered/Resolved]
  - Tryptase increased [Recovered/Resolved]
  - Blood pressure decreased [Recovered/Resolved]
  - Anaphylactic reaction [Recovered/Resolved]
  - Tachycardia [Recovered/Resolved]
  - Syncope [Recovered/Resolved]
  - Abdominal pain [Recovered/Resolved]
  - Skin test positive [Recovered/Resolved]

NARRATIVE: CASE EVENT DATE: 20150905
